FAERS Safety Report 8198198 (Version 2)
Quarter: 2014Q2

REPORT INFORMATION
  Report Type: Spontaneous
  Country: None (occurrence: None)
  Receive Date: 20111012
  Receipt Date: 20140416
  Transmission Date: 20141212
  Serious: Yes (Congenital Anomaly, Other)
  Sender: FDA-Public Use
  Company Number: AUR-APL-2009-01361

PATIENT
  Age: 1 Hour
  Sex: Male
  Weight: 3.37 kg

DRUGS (9)
  1. ZIDOVUDINE [Suspect]
     Indication: HIV INFECTION
     Dosage: 600 MG (600 MG, 1 IN 1 D), TRANSPLACENTAL
     Route: 064
     Dates: start: 20040601, end: 20040720
  2. LAMIVUDINE [Suspect]
     Indication: HIV INFECTION
     Dosage: 1200 MG (1200 MG, 1 IN 1 D), TRANSPLACENTAL
     Route: 064
     Dates: start: 20040130, end: 20040601
  3. KALETRA [Suspect]
     Indication: HIV INFECTION
     Dosage: 600 MG (600 MG, 1 IN 1 D), TRANSPLACENTAL
     Route: 064
     Dates: start: 20010601
  4. VIRACEPT [Suspect]
     Indication: HIV INFECTION
     Dosage: 2500 MG (2500 MG, 1 IN 1 D), TRANSPLACENTAL
     Route: 064
     Dates: start: 20040130, end: 20040601
  5. VIREAD [Suspect]
     Indication: HIV INFECTION
     Dosage: 300 MG (300 MG, 1 IN 1 D), TRANSPLACENTAL
     Route: 064
     Dates: start: 20040606, end: 20040910
  6. INDINAVIR SULFATE [Suspect]
     Indication: PRODUCT USED FOR UNKNOWN INDICATION
     Dosage: TRANSPLACENTAL
     Route: 064
     Dates: start: 20040601, end: 20040720
  7. RETROVIR [Suspect]
     Indication: HIV INFECTION
     Dosage: 600 MG (600 MG, 1 IN 1 D), TRANSPLACENTAL
     Route: 064
     Dates: start: 20040601, end: 20040720
  8. TRUVADA [Suspect]
     Indication: HIV INFECTION
     Dosage: 300 MG, TRANSPLACENTAL
     Route: 064
  9. FOLIC ACID [Concomitant]

REACTIONS (9)
  - Cryptorchism [None]
  - Abdominal distension [None]
  - Abdominal hernia [None]
  - Cardiac murmur [None]
  - Umbilical hernia [None]
  - Exomphalos [None]
  - Gastroschisis [None]
  - Congenital anomaly [None]
  - Maternal drugs affecting foetus [None]
